FAERS Safety Report 13055436 (Version 1)
Quarter: 2016Q4

REPORT INFORMATION
  Report Type: Spontaneous
  Country: JP (occurrence: JP)
  Receive Date: 20161222
  Receipt Date: 20161222
  Transmission Date: 20170207
  Serious: Yes (Other)
  Sender: FDA-Public Use
  Company Number: JP-MYLANLABS-2016M1056581

PATIENT

DRUGS (4)
  1. ISONIAZID. [Suspect]
     Active Substance: ISONIAZID
     Indication: PULMONARY TUBERCULOSIS
     Dosage: 300MG/DAY; INDUCTION CHEMOTHERAPY FOR 2 MONTHS FOLLOWED BY 4 MONTHS OF MAINTENANCE THERAPY
     Route: 065
  2. RIFAMPICIN [Suspect]
     Active Substance: RIFAMPIN
     Indication: PULMONARY TUBERCULOSIS
     Dosage: 600MG/DAY; INDUCTION CHEMOTHERAPY FOR 2 MONTHS FOLLOWED BY 4 MONTHS OF MAINTENANCE THERAPY
     Route: 065
  3. ETHAMBUTOL [Suspect]
     Active Substance: ETHAMBUTOL HYDROCHLORIDE
     Indication: PULMONARY TUBERCULOSIS
     Dosage: 1000MG/DAY; INDUCTION CHEMOTHERAPY FOR 2 MONTHS
     Route: 065
  4. PYRAZINAMIDE. [Suspect]
     Active Substance: PYRAZINAMIDE
     Indication: PULMONARY TUBERCULOSIS
     Dosage: 1200MG/DAY; INDUCTION CHEMOTHERAPY FOR 2 MONTHS
     Route: 065

REACTIONS (2)
  - Pulmonary tuberculosis [Recovered/Resolved]
  - Paradoxical drug reaction [Recovered/Resolved]
